FAERS Safety Report 5729206-6 (Version None)
Quarter: 2008Q2

REPORT INFORMATION
  Report Type: 
  Country: None (occurrence: None)
  Receive Date: 20080506
  Receipt Date: 20080425
  Transmission Date: 20081010
  Serious: Yes (Hospitalization)
  Sender: FDA-Public Use
  Company Number: BR-AVENTIS-200813829GDDC

PATIENT
  Age: 42 Year
  Sex: Female
  Weight: 52 kg

DRUGS (6)
  1. LANTUS [Suspect]
     Route: 058
     Dates: start: 20070101, end: 20070101
  2. LANTUS [Suspect]
     Route: 058
     Dates: start: 20080301
  3. OPTIPEN (INSULIN PUMP) [Suspect]
     Route: 058
  4. HYDROCHLOROTHIAZIDE [Concomitant]
     Indication: HYPERTENSION
     Dosage: DOSE QUANTITY: 1
     Route: 048
     Dates: start: 20060101
  5. SELOZOK [Concomitant]
     Dosage: DOSE QUANTITY: 2
     Route: 048
     Dates: start: 20040101
  6. CAPTOPRIL [Concomitant]
     Indication: HYPERTENSION
     Dosage: DOSE QUANTITY: 2
     Route: 048
     Dates: start: 20020101

REACTIONS (7)
  - BREAST PAIN [None]
  - HEADACHE [None]
  - HYPERGLYCAEMIA [None]
  - PAIN [None]
  - PULMONARY OEDEMA [None]
  - PYREXIA [None]
  - THIRST [None]
